FAERS Safety Report 7761348-6 (Version None)
Quarter: 2011Q3

REPORT INFORMATION
  Report Type: 
  Country: None (occurrence: None)
  Receive Date: 20110920
  Receipt Date: 20110915
  Transmission Date: 20111222
  Serious: No
  Sender: FDA-Public Use
  Company Number: US-PFIZER INC-2011218856

PATIENT
  Sex: Male
  Weight: 72.562 kg

DRUGS (6)
  1. LYRICA [Suspect]
     Dosage: UNK
     Route: 048
     Dates: start: 20110912
  2. VALSARTAN [Concomitant]
     Indication: HYPERTENSION
     Dosage: UNK
  3. ZOCOR [Concomitant]
     Indication: BLOOD CHOLESTEROL INCREASED
     Dosage: UNK
  4. KLONOPIN [Concomitant]
     Dosage: UNK
  5. VITAMIN B-12 [Concomitant]
     Dosage: UNK
  6. LYRICA [Suspect]
     Indication: PHANTOM PAIN
     Dosage: 75 MG, 1X/DAY
     Route: 048
     Dates: start: 20110401

REACTIONS (1)
  - DIARRHOEA [None]
